FAERS Safety Report 9230739 (Version 1)
Quarter: 2013Q1

REPORT INFORMATION
  Report Type: Spontaneous
  Country: US (occurrence: None)
  Receive Date: 20121031
  Receipt Date: 20121031
  Transmission Date: 20140127
  Serious: No
  Sender: FDA-Public Use
  Company Number: PHEH2012US013448

PATIENT
  Age: 43 Year
  Sex: Female
  Weight: 111 kg

DRUGS (18)
  1. GILENYA (FTY) [Suspect]
     Route: 048
     Dates: start: 2011
  2. ZOLOFT (SERTRALINE HYDROCHLORIDE) [Concomitant]
  3. NEURONTINE (GABAPENTIN) [Concomitant]
  4. ADVAIR (FLUTICASONE PROPIONATE, SALMETEROL XINAFOATE) [Concomitant]
  5. OMEPRAZOLE (OMEPRAZOLE) [Concomitant]
  6. CETIRIZINE HYDROCHLORIDE (CETIRIZINE HYDROCHLORIDE) [Concomitant]
  7. MOBIC (MELOXICAM) [Concomitant]
  8. NUCYNTA (TAPENTADOL HYDROCHLORIDE) [Concomitant]
  9. LISINOPRIL (LISINOPRIL) [Concomitant]
  10. HYDROCHLOROTHIAZIDE (HYDROCHLOROTHIAZIDE) [Concomitant]
  11. KENALOG [Concomitant]
  12. MAGIC MOUTHWASH (DIPHENHYDRAMINE HYDROCHLORIDE, HYDROCORTISONE, NYSTATIN) [Concomitant]
  13. ZANAFLEX (TIZANIDINE HYDROCHLORIDE) [Concomitant]
  14. IMITREX (SUMATRIPTAN SUCCINATE) [Concomitant]
  15. TOPAMAX (TOPIRAMATE) [Concomitant]
  16. CIPRO (CIPROFLOXACIN HYDROCHLORIDE) [Concomitant]
  17. FLAGYL (METRONIDAZOLE BENZOATE) [Concomitant]
  18. VITAMIN B12 (CYANOCOBALAMIN) [Concomitant]

REACTIONS (7)
  - Dysphonia [None]
  - Pyrexia [None]
  - Abdominal pain [None]
  - Nausea [None]
  - Vomiting [None]
  - Nasopharyngitis [None]
  - Alopecia [None]
